FAERS Safety Report 7742802-X (Version None)
Quarter: 2011Q3

REPORT INFORMATION
  Report Type: 
  Country: None (occurrence: None)
  Receive Date: 20110831
  Receipt Date: 20110826
  Transmission Date: 20111222
  Serious: Yes (Hospitalization)
  Sender: FDA-Public Use
  Company Number: WAES 0809USA00981

PATIENT
  Age: 72 Year
  Sex: Male
  Weight: 98.8842 kg

DRUGS (94)
  1. REVLIMID [Suspect]
     Indication: MULTIPLE MYELOMA
     Dosage: 10 MG/DAILY/PO    5 MG/DAILY/PO
     Route: 048
     Dates: start: 20081014, end: 20081103
  2. REVLIMID [Suspect]
     Indication: MULTIPLE MYELOMA
     Dosage: 10 MG/DAILY/PO    5 MG/DAILY/PO
     Route: 048
     Dates: start: 20081111, end: 20081201
  3. REVLIMID [Suspect]
     Indication: MULTIPLE MYELOMA
     Dosage: 10 MG/DAILY/PO    5 MG/DAILY/PO
     Route: 048
     Dates: start: 20080617, end: 20080707
  4. REVLIMID [Suspect]
     Indication: MULTIPLE MYELOMA
     Dosage: 10 MG/DAILY/PO    5 MG/DAILY/PO
     Route: 048
     Dates: start: 20090324, end: 20090413
  5. REVLIMID [Suspect]
     Indication: MULTIPLE MYELOMA
     Dosage: 10 MG/DAILY/PO    5 MG/DAILY/PO
     Route: 048
     Dates: start: 20090811, end: 20090831
  6. REVLIMID [Suspect]
     Indication: MULTIPLE MYELOMA
     Dosage: 10 MG/DAILY/PO    5 MG/DAILY/PO
     Route: 048
     Dates: start: 20080422, end: 20080512
  7. REVLIMID [Suspect]
     Indication: MULTIPLE MYELOMA
     Dosage: 10 MG/DAILY/PO    5 MG/DAILY/PO
     Route: 048
     Dates: start: 20090908, end: 20090928
  8. REVLIMID [Suspect]
     Indication: MULTIPLE MYELOMA
     Dosage: 10 MG/DAILY/PO    5 MG/DAILY/PO
     Route: 048
     Dates: start: 20091103, end: 20091123
  9. REVLIMID [Suspect]
     Indication: MULTIPLE MYELOMA
     Dosage: 10 MG/DAILY/PO    5 MG/DAILY/PO
     Route: 048
     Dates: start: 20100126, end: 20100215
  10. REVLIMID [Suspect]
     Indication: MULTIPLE MYELOMA
     Dosage: 10 MG/DAILY/PO    5 MG/DAILY/PO
     Route: 048
     Dates: start: 20080715, end: 20080804
  11. REVLIMID [Suspect]
     Indication: MULTIPLE MYELOMA
     Dosage: 10 MG/DAILY/PO    5 MG/DAILY/PO
     Route: 048
     Dates: start: 20091006, end: 20091026
  12. REVLIMID [Suspect]
     Indication: MULTIPLE MYELOMA
     Dosage: 10 MG/DAILY/PO    5 MG/DAILY/PO
     Route: 048
     Dates: start: 20091229, end: 20100118
  13. REVLIMID [Suspect]
     Indication: MULTIPLE MYELOMA
     Dosage: 10 MG/DAILY/PO    5 MG/DAILY/PO
     Route: 048
     Dates: start: 20081223, end: 20090112
  14. REVLIMID [Suspect]
     Indication: MULTIPLE MYELOMA
     Dosage: 10 MG/DAILY/PO    5 MG/DAILY/PO
     Route: 048
     Dates: start: 20090602, end: 20090622
  15. REVLIMID [Suspect]
     Indication: MULTIPLE MYELOMA
     Dosage: 10 MG/DAILY/PO    5 MG/DAILY/PO
     Route: 048
     Dates: start: 20090630, end: 20090720
  16. REVLIMID [Suspect]
     Indication: MULTIPLE MYELOMA
     Dosage: 10 MG/DAILY/PO    5 MG/DAILY/PO
     Route: 048
     Dates: start: 20080812, end: 20080901
  17. REVLIMID [Suspect]
     Indication: MULTIPLE MYELOMA
     Dosage: 10 MG/DAILY/PO    5 MG/DAILY/PO
     Route: 048
     Dates: start: 20090223, end: 20090315
  18. REVLIMID [Suspect]
     Indication: MULTIPLE MYELOMA
     Dosage: 10 MG/DAILY/PO    5 MG/DAILY/PO
     Route: 048
     Dates: start: 20090421, end: 20090511
  19. REVLIMID [Suspect]
     Indication: MULTIPLE MYELOMA
     Dosage: 10 MG/DAILY/PO    5 MG/DAILY/PO
     Route: 048
     Dates: start: 20090120, end: 20090209
  20. REVLIMID [Suspect]
     Indication: MULTIPLE MYELOMA
     Dosage: 10 MG/DAILY/PO    5 MG/DAILY/PO
     Route: 048
     Dates: start: 20080520, end: 20080602
  21. REVLIMID [Suspect]
     Indication: MULTIPLE MYELOMA
     Dosage: 10 MG/DAILY/PO    5 MG/DAILY/PO
     Route: 048
     Dates: start: 20080916, end: 20081006
  22. ACYCLOVIR [Concomitant]
  23. BENICAR [Concomitant]
  24. XALATAN [Concomitant]
  25. ZOCOR [Concomitant]
  26. ZOMETA [Concomitant]
  27. CAP VORINOSTAT 300 MG [Suspect]
     Indication: MULTIPLE MYELOMA
     Dosage: 300 MG/DAILY/PO
     Route: 048
     Dates: start: 20080812, end: 20080814
  28. CAP VORINOSTAT 300 MG [Suspect]
     Indication: MULTIPLE MYELOMA
     Dosage: 300 MG/DAILY/PO
     Route: 048
     Dates: start: 20080930, end: 20081002
  29. CAP VORINOSTAT 300 MG [Suspect]
     Indication: MULTIPLE MYELOMA
     Dosage: 300 MG/DAILY/PO
     Route: 048
     Dates: start: 20081111, end: 20081113
  30. CAP VORINOSTAT 300 MG [Suspect]
     Indication: MULTIPLE MYELOMA
     Dosage: 300 MG/DAILY/PO
     Route: 048
     Dates: start: 20081223, end: 20081225
  31. CAP VORINOSTAT 300 MG [Suspect]
     Indication: MULTIPLE MYELOMA
     Dosage: 300 MG/DAILY/PO
     Route: 048
     Dates: start: 20090106, end: 20090108
  32. CAP VORINOSTAT 300 MG [Suspect]
     Indication: MULTIPLE MYELOMA
     Dosage: 300 MG/DAILY/PO
     Route: 048
     Dates: start: 20090309, end: 20090311
  33. CAP VORINOSTAT 300 MG [Suspect]
     Indication: MULTIPLE MYELOMA
     Dosage: 300 MG/DAILY/PO
     Route: 048
     Dates: start: 20090707, end: 20090709
  34. CAP VORINOSTAT 300 MG [Suspect]
     Indication: MULTIPLE MYELOMA
     Dosage: 300 MG/DAILY/PO
     Route: 048
     Dates: start: 20090825, end: 20090827
  35. CAP VORINOSTAT 300 MG [Suspect]
     Indication: MULTIPLE MYELOMA
     Dosage: 300 MG/DAILY/PO
     Route: 048
     Dates: start: 20091103, end: 20091105
  36. CAP VORINOSTAT 300 MG [Suspect]
     Indication: MULTIPLE MYELOMA
     Dosage: 300 MG/DAILY/PO
     Route: 048
     Dates: start: 20081230, end: 20090101
  37. CAP VORINOSTAT 300 MG [Suspect]
     Indication: MULTIPLE MYELOMA
     Dosage: 300 MG/DAILY/PO
     Route: 048
     Dates: start: 20090609, end: 20090611
  38. CAP VORINOSTAT 300 MG [Suspect]
     Indication: MULTIPLE MYELOMA
     Dosage: 300 MG/DAILY/PO
     Route: 048
     Dates: start: 20091010, end: 20091015
  39. CAP VORINOSTAT 300 MG [Suspect]
     Indication: MULTIPLE MYELOMA
     Dosage: 300 MG/DAILY/PO
     Route: 048
     Dates: start: 20091110, end: 20091112
  40. CAP VORINOSTAT 300 MG [Suspect]
     Indication: MULTIPLE MYELOMA
     Dosage: 300 MG/DAILY/PO
     Route: 048
     Dates: start: 20080826, end: 20080828
  41. CAP VORINOSTAT 300 MG [Suspect]
     Indication: MULTIPLE MYELOMA
     Dosage: 300 MG/DAILY/PO
     Route: 048
     Dates: start: 20080923, end: 20080925
  42. CAP VORINOSTAT 300 MG [Suspect]
     Indication: MULTIPLE MYELOMA
     Dosage: 300 MG/DAILY/PO
     Route: 048
     Dates: start: 20090127, end: 20090129
  43. CAP VORINOSTAT 300 MG [Suspect]
     Indication: MULTIPLE MYELOMA
     Dosage: 300 MG/DAILY/PO
     Route: 048
     Dates: start: 20080520, end: 20080526
  44. CAP VORINOSTAT 300 MG [Suspect]
     Indication: MULTIPLE MYELOMA
     Dosage: 300 MG/DAILY/PO
     Route: 048
     Dates: start: 20090302, end: 20090304
  45. CAP VORINOSTAT 300 MG [Suspect]
     Indication: MULTIPLE MYELOMA
     Dosage: 300 MG/DAILY/PO
     Route: 048
     Dates: start: 20090331, end: 20090402
  46. CAP VORINOSTAT 300 MG [Suspect]
     Indication: MULTIPLE MYELOMA
     Dosage: 300 MG/DAILY/PO
     Route: 048
     Dates: start: 20090421, end: 20090423
  47. CAP VORINOSTAT 300 MG [Suspect]
     Indication: MULTIPLE MYELOMA
     Dosage: 300 MG/DAILY/PO
     Route: 048
     Dates: start: 20090602, end: 20090604
  48. CAP VORINOSTAT 300 MG [Suspect]
     Indication: MULTIPLE MYELOMA
     Dosage: 300 MG/DAILY/PO
     Route: 048
     Dates: start: 20090908, end: 20090910
  49. CAP VORINOSTAT 300 MG [Suspect]
     Indication: MULTIPLE MYELOMA
     Dosage: 300 MG/DAILY/PO
     Route: 048
     Dates: start: 20090922, end: 20090924
  50. CAP VORINOSTAT 300 MG [Suspect]
     Indication: MULTIPLE MYELOMA
     Dosage: 300 MG/DAILY/PO
     Route: 048
     Dates: start: 20080715, end: 20080717
  51. CAP VORINOSTAT 300 MG [Suspect]
     Indication: MULTIPLE MYELOMA
     Dosage: 300 MG/DAILY/PO
     Route: 048
     Dates: start: 20080722, end: 20080724
  52. CAP VORINOSTAT 300 MG [Suspect]
     Indication: MULTIPLE MYELOMA
     Dosage: 300 MG/DAILY/PO
     Route: 048
     Dates: start: 20081118, end: 20081120
  53. CAP VORINOSTAT 300 MG [Suspect]
     Indication: MULTIPLE MYELOMA
     Dosage: 300 MG/DAILY/PO
     Route: 048
     Dates: start: 20091117, end: 20091119
  54. CAP VORINOSTAT 300 MG [Suspect]
     Indication: MULTIPLE MYELOMA
     Dosage: 300 MG/DAILY/PO
     Route: 048
     Dates: start: 20080422, end: 20080512
  55. CAP VORINOSTAT 300 MG [Suspect]
     Indication: MULTIPLE MYELOMA
     Dosage: 300 MG/DAILY/PO
     Route: 048
     Dates: start: 20081028, end: 20081030
  56. CAP VORINOSTAT 300 MG [Suspect]
     Indication: MULTIPLE MYELOMA
     Dosage: 300 MG/DAILY/PO
     Route: 048
     Dates: start: 20090203, end: 20090205
  57. CAP VORINOSTAT 300 MG [Suspect]
     Indication: MULTIPLE MYELOMA
     Dosage: 300 MG/DAILY/PO
     Route: 048
     Dates: start: 20090428, end: 20090430
  58. CAP VORINOSTAT 300 MG [Suspect]
     Indication: MULTIPLE MYELOMA
     Dosage: 300 MG/DAILY/PO
     Route: 048
     Dates: start: 20090630, end: 20090702
  59. CAP VORINOSTAT 300 MG [Suspect]
     Indication: MULTIPLE MYELOMA
     Dosage: 300 MG/DAILY/PO
     Route: 048
     Dates: start: 20090811, end: 20090813
  60. CAP VORINOSTAT 300 MG [Suspect]
     Indication: MULTIPLE MYELOMA
     Dosage: 300 MG/DAILY/PO
     Route: 048
     Dates: start: 20091020, end: 20091022
  61. CAP VORINOSTAT 300 MG [Suspect]
     Indication: MULTIPLE MYELOMA
     Dosage: 300 MG/DAILY/PO
     Route: 048
     Dates: start: 20080617, end: 20080626
  62. CAP VORINOSTAT 300 MG [Suspect]
     Indication: MULTIPLE MYELOMA
     Dosage: 300 MG/DAILY/PO
     Route: 048
     Dates: start: 20080729, end: 20080731
  63. CAP VORINOSTAT 300 MG [Suspect]
     Indication: MULTIPLE MYELOMA
     Dosage: 300 MG/DAILY/PO
     Route: 048
     Dates: start: 20080819, end: 20080821
  64. CAP VORINOSTAT 300 MG [Suspect]
     Indication: MULTIPLE MYELOMA
     Dosage: 300 MG/DAILY/PO
     Route: 048
     Dates: start: 20081014, end: 20081016
  65. CAP VORINOSTAT 300 MG [Suspect]
     Indication: MULTIPLE MYELOMA
     Dosage: 300 MG/DAILY/PO
     Route: 048
     Dates: start: 20090223, end: 20090225
  66. CAP VORINOSTAT 300 MG [Suspect]
     Indication: MULTIPLE MYELOMA
     Dosage: 300 MG/DAILY/PO
     Route: 048
     Dates: start: 20090324, end: 20090326
  67. CAP VORINOSTAT 300 MG [Suspect]
     Indication: MULTIPLE MYELOMA
     Dosage: 300 MG/DAILY/PO
     Route: 048
     Dates: start: 20090818, end: 20090820
  68. CAP VORINOSTAT 300 MG [Suspect]
     Indication: MULTIPLE MYELOMA
     Dosage: 300 MG/DAILY/PO
     Route: 048
     Dates: start: 20080701, end: 20080703
  69. CAP VORINOSTAT 300 MG [Suspect]
     Indication: MULTIPLE MYELOMA
     Dosage: 300 MG/DAILY/PO
     Route: 048
     Dates: start: 20080916, end: 20080918
  70. CAP VORINOSTAT 300 MG [Suspect]
     Indication: MULTIPLE MYELOMA
     Dosage: 300 MG/DAILY/PO
     Route: 048
     Dates: start: 20081021, end: 20081023
  71. CAP VORINOSTAT 300 MG [Suspect]
     Indication: MULTIPLE MYELOMA
     Dosage: 300 MG/DAILY/PO
     Route: 048
     Dates: start: 20081125, end: 20081127
  72. CAP VORINOSTAT 300 MG [Suspect]
     Indication: MULTIPLE MYELOMA
     Dosage: 300 MG/DAILY/PO
     Route: 048
     Dates: start: 20090120, end: 20090122
  73. CAP VORINOSTAT 300 MG [Suspect]
     Indication: MULTIPLE MYELOMA
     Dosage: 300 MG/DAILY/PO
     Route: 048
     Dates: start: 20090407, end: 20090409
  74. CAP VORINOSTAT 300 MG [Suspect]
     Indication: MULTIPLE MYELOMA
     Dosage: 300 MG/DAILY/PO
     Route: 048
     Dates: start: 20090505, end: 20090507
  75. CAP VORINOSTAT 300 MG [Suspect]
     Indication: MULTIPLE MYELOMA
     Dosage: 300 MG/DAILY/PO
     Route: 048
     Dates: start: 20090616, end: 20090618
  76. CAP VORINOSTAT 300 MG [Suspect]
     Indication: MULTIPLE MYELOMA
     Dosage: 300 MG/DAILY/PO
     Route: 048
     Dates: start: 20090714, end: 20090716
  77. CAP VORINOSTAT 300 MG [Suspect]
     Indication: MULTIPLE MYELOMA
     Dosage: 300 MG/DAILY/PO
     Route: 048
     Dates: start: 20090915, end: 20090917
  78. CAP VORINOSTAT 300 MG [Suspect]
     Indication: MULTIPLE MYELOMA
     Dosage: 300 MG/DAILY/PO
     Route: 048
     Dates: start: 20091006, end: 20091008
  79. ALLOPURINOL [Concomitant]
  80. DEXAMETHASONE [Suspect]
     Indication: MULTIPLE MYELOMA
     Dosage: 40 MG/WKY/PO
     Route: 048
     Dates: start: 20090811, end: 20090929
  81. DEXAMETHASONE [Suspect]
     Indication: MULTIPLE MYELOMA
     Dosage: 40 MG/WKY/PO
     Route: 048
     Dates: start: 20090223, end: 20090310
  82. DEXAMETHASONE [Suspect]
     Indication: MULTIPLE MYELOMA
     Dosage: 40 MG/WKY/PO
     Route: 048
     Dates: start: 20081230, end: 20081230
  83. DEXAMETHASONE [Suspect]
     Indication: MULTIPLE MYELOMA
     Dosage: 40 MG/WKY/PO
     Route: 048
     Dates: start: 20090120, end: 20090210
  84. DEXAMETHASONE [Suspect]
     Indication: MULTIPLE MYELOMA
     Dosage: 40 MG/WKY/PO
     Route: 048
     Dates: start: 20080422, end: 20080902
  85. DEXAMETHASONE [Suspect]
     Indication: MULTIPLE MYELOMA
     Dosage: 40 MG/WKY/PO
     Route: 048
     Dates: start: 20091006, end: 20091124
  86. DEXAMETHASONE [Suspect]
     Indication: MULTIPLE MYELOMA
     Dosage: 40 MG/WKY/PO
     Route: 048
     Dates: start: 20080916, end: 20081202
  87. DEXAMETHASONE [Suspect]
     Indication: MULTIPLE MYELOMA
     Dosage: 40 MG/WKY/PO
     Route: 048
     Dates: start: 20090324, end: 20090512
  88. DEXAMETHASONE [Suspect]
     Indication: MULTIPLE MYELOMA
     Dosage: 40 MG/WKY/PO
     Route: 048
     Dates: start: 20091001, end: 20091001
  89. DEXAMETHASONE [Suspect]
     Indication: MULTIPLE MYELOMA
     Dosage: 40 MG/WKY/PO
     Route: 048
     Dates: start: 20090602, end: 20090721
  90. SULAR [Concomitant]
  91. COREG [Concomitant]
  92. PROCRIT [Concomitant]
  93. TIMOPTIC [Concomitant]
  94. ASPIRIN [Concomitant]

REACTIONS (12)
  - HAEMATOCRIT DECREASED [None]
  - LUNG INFILTRATION [None]
  - BLOOD PRESSURE INCREASED [None]
  - BLOOD GLUCOSE INCREASED [None]
  - SEPTIC SHOCK [None]
  - ACUTE RESPIRATORY FAILURE [None]
  - PNEUMONIA [None]
  - BLOOD LACTATE DEHYDROGENASE INCREASED [None]
  - HAEMOGLOBIN DECREASED [None]
  - PLEURAL EFFUSION [None]
  - NASAL CONGESTION [None]
  - EPISTAXIS [None]
